FAERS Safety Report 17408367 (Version 3)
Quarter: 2020Q2

REPORT INFORMATION
  Report Type: Spontaneous
  Country: US (occurrence: US)
  Receive Date: 20200212
  Receipt Date: 20200602
  Transmission Date: 20200713
  Serious: Yes (Other)
  Sender: FDA-Public Use
  Company Number: US-GILEAD-2020-0450628

PATIENT
  Age: 60 Year
  Sex: Male

DRUGS (42)
  1. ABACAVIR. [Concomitant]
     Active Substance: ABACAVIR
  2. TRAMADOL. [Concomitant]
     Active Substance: TRAMADOL
  3. CEPHALEXIN AMEL [Concomitant]
     Active Substance: CEPHALEXIN
  4. BACIBACT [Concomitant]
  5. CHLORAPREP [Concomitant]
     Active Substance: CHLORHEXIDINE GLUCONATE\ISOPROPYL ALCOHOL
  6. LACTATED RINGERS SOLUTION [Concomitant]
     Active Substance: CALCIUM CHLORIDE\POTASSIUM CHLORIDE\SODIUM CHLORIDE\SODIUM LACTATE
  7. VERSED [Concomitant]
     Active Substance: MIDAZOLAM HYDROCHLORIDE
  8. VIREAD [Suspect]
     Active Substance: TENOFOVIR DISOPROXIL FUMARATE
     Dosage: UNK
     Route: 048
  9. SUBLIMAZE [Concomitant]
     Active Substance: FENTANYL CITRATE
  10. SENSORCAINE [BUPIVACAINE HYDROCHLORIDE] [Concomitant]
  11. AZITHROMYCIN ANHYDROUS. [Concomitant]
     Active Substance: AZITHROMYCIN ANHYDROUS
  12. FLUTICASONE. [Concomitant]
     Active Substance: FLUTICASONE
  13. CIPROFLOXACIN. [Concomitant]
     Active Substance: CIPROFLOXACIN
  14. ASA [Concomitant]
     Active Substance: ASPIRIN
  15. ALCOHOL. [Concomitant]
     Active Substance: ALCOHOL
  16. ZOFRAN [Concomitant]
     Active Substance: ONDANSETRON HYDROCHLORIDE
  17. NORMAL SALINE [Concomitant]
     Active Substance: SODIUM CHLORIDE
  18. PROPOFOL. [Concomitant]
     Active Substance: PROPOFOL
  19. STRIBILD [Suspect]
     Active Substance: COBICISTAT\ELVITEGRAVIR\EMTRICITABINE\TENOFOVIR DISOPROXIL FUMARATE
     Indication: HIV INFECTION
     Dosage: UNK
     Route: 048
     Dates: start: 20160304, end: 20160406
  20. ZOLPIDEM [Concomitant]
     Active Substance: ZOLPIDEM TARTRATE
  21. NEVIRAPINE. [Concomitant]
     Active Substance: NEVIRAPINE
  22. PERCOCET [OXYCODONE HYDROCHLORIDE;OXYCODONE TEREPHTHALATE;PARACETAMOL] [Concomitant]
     Active Substance: ACETAMINOPHEN\OXYCODONE HYDROCHLORIDE\OXYCODONE TEREPHTHALATE
  23. LIDOCAINE. [Concomitant]
     Active Substance: LIDOCAINE
  24. MIDAZOLAM. [Concomitant]
     Active Substance: MIDAZOLAM
  25. CEFDINIR. [Concomitant]
     Active Substance: CEFDINIR
  26. VIREAD [Suspect]
     Active Substance: TENOFOVIR DISOPROXIL FUMARATE
     Indication: HIV INFECTION
     Dosage: UNK
     Route: 048
     Dates: start: 20130102, end: 20160316
  27. ATENOLOL. [Concomitant]
     Active Substance: ATENOLOL
  28. NEOSPORIN [NEOMYCIN SULFATE;POLYMYXIN B SULFATE] [Concomitant]
  29. DEXAMETHASONE. [Concomitant]
     Active Substance: DEXAMETHASONE
  30. NAROPIN [Concomitant]
     Active Substance: ROPIVACAINE HYDROCHLORIDE
  31. ATORVASTATIN [Concomitant]
     Active Substance: ATORVASTATIN
  32. GENVOYA [Concomitant]
     Active Substance: COBICISTAT\ELVITEGRAVIR\EMTRICITABINE\TENOFOVIR ALAFENAMIDE FUMARATE
  33. VIRAMUNE [Concomitant]
     Active Substance: NEVIRAPINE
  34. ANCEF O [Concomitant]
  35. OXYCONTIN [Concomitant]
     Active Substance: OXYCODONE HYDROCHLORIDE
  36. AZELASTINE. [Concomitant]
     Active Substance: AZELASTINE HYDROCHLORIDE
  37. PRAVASTATIN. [Concomitant]
     Active Substance: PRAVASTATIN
  38. ACYCLOVIR ABBOTT VIAL [Concomitant]
  39. CELEBREX [Concomitant]
     Active Substance: CELECOXIB
  40. TYLENOL [Concomitant]
     Active Substance: ACETAMINOPHEN
  41. ATIVAN [Concomitant]
     Active Substance: LORAZEPAM
  42. HYDROCODONE BITARTRATE AND ACETAMINOPHEN [Concomitant]
     Active Substance: ACETAMINOPHEN\HYDROCODONE BITARTRATE

REACTIONS (10)
  - Wrist fracture [Not Recovered/Not Resolved]
  - Anhedonia [Unknown]
  - Pain [Unknown]
  - Upper limb fracture [Not Recovered/Not Resolved]
  - Osteopenia [Not Recovered/Not Resolved]
  - Osteoporosis [Not Recovered/Not Resolved]
  - Anxiety [Unknown]
  - Economic problem [Unknown]
  - Bone density decreased [Unknown]
  - Emotional distress [Unknown]

NARRATIVE: CASE EVENT DATE: 20140604
